FAERS Safety Report 8970866 (Version 2)
Quarter: 2012Q4

REPORT INFORMATION
  Report Type: 
  Country: NO (occurrence: NO)
  Receive Date: 20121218
  Receipt Date: 20121221
  Transmission Date: 20130627
  Serious: Yes (Death)
  Sender: FDA-Public Use
  Company Number: NO-PFIZER INC-2012319794

PATIENT
  Age: 54 Year
  Sex: Male

DRUGS (2)
  1. CHAMPIX [Suspect]
     Indication: SMOKING CESSATION THERAPY
     Dosage: 0.5 mg, 1x/day
     Route: 048
     Dates: start: 2012, end: 2012
  2. CHAMPIX [Suspect]
     Dosage: 1 mg, 1x/day
     Dates: start: 2012

REACTIONS (3)
  - Completed suicide [Fatal]
  - Abnormal behaviour [Fatal]
  - Personality change [Fatal]
